FAERS Safety Report 21082525 (Version 2)
Quarter: 2022Q3

REPORT INFORMATION
  Report Type: Spontaneous
  Country: JP (occurrence: JP)
  Receive Date: 20220714
  Receipt Date: 20220901
  Transmission Date: 20221027
  Serious: Yes (Other)
  Sender: FDA-Public Use
  Company Number: JP-OTSUKA-2022_032450

PATIENT
  Age: 34 Year
  Sex: Male
  Weight: 120 kg

DRUGS (4)
  1. TOLVAPTAN [Suspect]
     Active Substance: TOLVAPTAN
     Indication: Cardiac failure
     Dosage: 8MG/DAY,UNK
     Route: 041
     Dates: start: 20220609, end: 20220609
  2. LASIX [Concomitant]
     Active Substance: FUROSEMIDE
     Indication: Cardiac failure
     Dosage: 20 MG, UNK
     Route: 041
     Dates: start: 20220609
  3. LASIX [Concomitant]
     Active Substance: FUROSEMIDE
     Dosage: 40 MG/DAY, UNK
     Route: 041
     Dates: end: 20220713
  4. LASIX [Concomitant]
     Active Substance: FUROSEMIDE
     Dosage: 20 MG, UNK
     Route: 048

REACTIONS (3)
  - Blood sodium increased [Recovered/Resolved]
  - Polyuria [Recovered/Resolved]
  - Thirst [Recovered/Resolved]

NARRATIVE: CASE EVENT DATE: 20220610
